FAERS Safety Report 9539756 (Version 1)
Quarter: 2013Q3

REPORT INFORMATION
  Report Type: Spontaneous
  Country: US (occurrence: US)
  Receive Date: 20130920
  Receipt Date: 20130920
  Transmission Date: 20140515
  Serious: No
  Sender: FDA-Public Use
  Company Number: US-PURDUE-USA-2013-0101016

PATIENT
  Age: 49 Year
  Sex: Male

DRUGS (4)
  1. INTERMEZZO [Suspect]
     Indication: MIDDLE INSOMNIA
     Dosage: 3.5 MG, PRN
     Route: 060
     Dates: start: 201304, end: 201304
  2. KLONOPIN [Concomitant]
     Indication: PRODUCT USED FOR UNKNOWN INDICATION
     Route: 048
  3. NORCO [Concomitant]
     Indication: PRODUCT USED FOR UNKNOWN INDICATION
     Route: 048
  4. GABA                               /00522701/ [Concomitant]
     Indication: PRODUCT USED FOR UNKNOWN INDICATION
     Route: 048

REACTIONS (1)
  - Drug effect decreased [Unknown]
